FAERS Safety Report 25867696 (Version 1)
Quarter: 2025Q4

REPORT INFORMATION
  Report Type: Spontaneous
  Country: AU (occurrence: AU)
  Receive Date: 20251001
  Receipt Date: 20251001
  Transmission Date: 20260117
  Serious: Yes (Other)
  Sender: CHEPLAPHARM
  Company Number: AU-CHEPLA-2025011265

PATIENT
  Age: 35 Year
  Sex: Male

DRUGS (8)
  1. OLANZAPINE [Suspect]
     Active Substance: OLANZAPINE
     Indication: Product use in unapproved indication
  2. ALPRAZOLAM [Suspect]
     Active Substance: ALPRAZOLAM
     Indication: Product use in unapproved indication
  3. AMITRIPTYLINE [Suspect]
     Active Substance: AMITRIPTYLINE
     Indication: Product use in unapproved indication
  4. CODEINE [Suspect]
     Active Substance: CODEINE
     Indication: Product use in unapproved indication
  5. DIAZEPAM [Suspect]
     Active Substance: DIAZEPAM
     Indication: Product use in unapproved indication
  6. PREGABALIN [Suspect]
     Active Substance: PREGABALIN
     Indication: Product use in unapproved indication
  7. TEMAZEPAM [Suspect]
     Active Substance: TEMAZEPAM
     Indication: Product use in unapproved indication
  8. HERBALS\TETRAHYDROCANNABINOL UNSPECIFIED [Concomitant]
     Active Substance: HERBALS\TETRAHYDROCANNABINOL UNSPECIFIED

REACTIONS (2)
  - Pneumonia aspiration [Unknown]
  - Toxicity to various agents [Unknown]
